FAERS Safety Report 4512377-7 (Version None)
Quarter: 2004Q4

REPORT INFORMATION
  Report Type: 
  Country: None (occurrence: None)
  Receive Date: 20041123
  Receipt Date: 20041110
  Transmission Date: 20050328
  Serious: Yes (Hospitalization)
  Sender: FDA-Public Use
  Company Number: 2004SE05803

PATIENT
  Age: 51 Year
  Sex: Male
  Weight: 67 kg

DRUGS (1)
  1. TCV-116 (PREMEDICATION) [Suspect]
     Indication: ESSENTIAL HYPERTENSION
     Dosage: 8 MG QD PO
     Route: 048
     Dates: start: 20040927, end: 20041008

REACTIONS (4)
  - BLOOD PRESSURE DECREASED [None]
  - BLOOD PRESSURE INCREASED [None]
  - GASTRIC ULCER HAEMORRHAGE [None]
  - HELICOBACTER INFECTION [None]
